FAERS Safety Report 16220483 (Version 3)
Quarter: 2020Q2

REPORT INFORMATION
  Report Type: Spontaneous
  Country: US (occurrence: US)
  Receive Date: 20190421
  Receipt Date: 20200420
  Transmission Date: 20200713
  Serious: Yes (Hospitalization)
  Sender: FDA-Public Use
  Company Number: US-JNJFOC-20190411774

PATIENT
  Age: 77 Year
  Sex: Male
  Weight: 77.18 kg

DRUGS (17)
  1. XARELTO [Suspect]
     Active Substance: RIVAROXABAN
     Indication: CEREBROVASCULAR ACCIDENT PROPHYLAXIS
     Route: 048
     Dates: start: 20181124
  2. SILODOSINE [Concomitant]
     Active Substance: SILODOSIN
  3. METFORMIN HCL [Concomitant]
     Active Substance: METFORMIN HYDROCHLORIDE
  4. BUDESONIDE W/FORMOTEROL FUMARATE [Concomitant]
     Active Substance: BUDESONIDE\FORMOTEROL FUMARATE
  5. XARELTO [Suspect]
     Active Substance: RIVAROXABAN
     Indication: CARDIAC ABLATION
     Route: 048
     Dates: start: 20160518, end: 20171206
  6. INSULIN LISPRO [Concomitant]
     Active Substance: INSULIN LISPRO
  7. FUROSEMIDE. [Concomitant]
     Active Substance: FUROSEMIDE
  8. INSULIN GLARGINE [Concomitant]
     Active Substance: INSULIN GLARGINE
     Dosage: 300 UNITS
  9. FINASTERIDE. [Concomitant]
     Active Substance: FINASTERIDE
  10. TOLTERODINE TARTRATE. [Concomitant]
     Active Substance: TOLTERODINE TARTRATE
  11. DOFETILIDE. [Concomitant]
     Active Substance: DOFETILIDE
  12. DILTIAZEM HCL [Concomitant]
     Active Substance: DILTIAZEM HYDROCHLORIDE
  13. ALPRAZOLAM. [Concomitant]
     Active Substance: ALPRAZOLAM
  14. PREDNISONE. [Concomitant]
     Active Substance: PREDNISONE
  15. XARELTO [Suspect]
     Active Substance: RIVAROXABAN
     Indication: ATRIAL FIBRILLATION
     Route: 048
     Dates: start: 20180509, end: 20181116
  16. POTASSIUM CHLORIDE. [Concomitant]
     Active Substance: POTASSIUM CHLORIDE
  17. FAMOTIDINE. [Concomitant]
     Active Substance: FAMOTIDINE

REACTIONS (4)
  - Off label use [Unknown]
  - Inappropriate schedule of product administration [Unknown]
  - Increased tendency to bruise [Unknown]
  - Gastrointestinal haemorrhage [Recovering/Resolving]

NARRATIVE: CASE EVENT DATE: 20181116
